FAERS Safety Report 7878587-6 (Version None)
Quarter: 2011Q4

REPORT INFORMATION
  Report Type: 
  Country: None (occurrence: None)
  Receive Date: 20111101
  Receipt Date: 20111101
  Transmission Date: 20120403
  Serious: Yes (Other)
  Sender: FDA-Public Use
  Company Number: None

PATIENT
  Age: 13 Year
  Sex: Female
  Weight: 53.523 kg

DRUGS (1)
  1. INTUNIV [Suspect]
     Indication: ATTENTION DEFICIT/HYPERACTIVITY DISORDER
     Dosage: 2 MG
     Route: 048
     Dates: start: 20110909, end: 20111013

REACTIONS (4)
  - AMNESIA [None]
  - CONDITION AGGRAVATED [None]
  - MINI MENTAL STATUS EXAMINATION ABNORMAL [None]
  - ANXIETY [None]
